FAERS Safety Report 23594854 (Version 1)
Quarter: 2024Q1

REPORT INFORMATION
  Report Type: Report from Study
  Country: CA (occurrence: CA)
  Receive Date: 20240305
  Receipt Date: 20240305
  Transmission Date: 20240410
  Serious: Yes (Other)
  Sender: FDA-Public Use
  Company Number: CA-TAKEDA-2024TUS019696

PATIENT
  Sex: Female

DRUGS (1)
  1. HUMAN IMMUNOGLOBULIN G [Suspect]
     Active Substance: HUMAN IMMUNOGLOBULIN G
     Indication: Infertility female
     Dosage: 13 GRAM, 1/WEEK
     Route: 042

REACTIONS (3)
  - Abortion spontaneous [Unknown]
  - Pregnancy [Recovered/Resolved]
  - Product use in unapproved indication [Unknown]
